FAERS Safety Report 7268997-2 (Version None)
Quarter: 2011Q1

REPORT INFORMATION
  Report Type: 
  Country: None (occurrence: None)
  Receive Date: 20110201
  Receipt Date: 20110124
  Transmission Date: 20110831
  Serious: Yes (Disabling, Other)
  Sender: FDA-Public Use
  Company Number: US-BAYER-2011-007851

PATIENT
  Weight: 83.9 kg

DRUGS (10)
  1. METHADONE [Concomitant]
     Indication: HIP ARTHROPLASTY
     Dosage: 10 MG 7 TO 8 TIMES A DAY
     Route: 048
  2. METHADONE [Concomitant]
     Indication: INTERVERTEBRAL DISC DEGENERATION
  3. KLONOPIN [Concomitant]
     Indication: DEPRESSION
  4. VIAGRA [Suspect]
     Indication: ERECTILE DYSFUNCTION
     Route: 048
  5. METHADONE [Concomitant]
     Indication: HIP SURGERY
  6. KLONOPIN [Concomitant]
     Indication: ANXIETY
     Dosage: 2 MG AT UNKNOWN FREQUENCY
     Route: 048
  7. LEVITRA [Suspect]
     Indication: ERECTILE DYSFUNCTION
     Route: 048
  8. METHADONE [Concomitant]
     Indication: SURGERY
  9. SOMA [Concomitant]
     Indication: MUSCLE DISORDER
     Dosage: 350 MG, BID
     Route: 048
  10. CIALIS [Concomitant]
     Indication: ERECTILE DYSFUNCTION
     Dosage: UNK

REACTIONS (3)
  - HEADACHE [None]
  - BLINDNESS UNILATERAL [None]
  - VISION BLURRED [None]
